FAERS Safety Report 14137019 (Version 5)
Quarter: 2018Q1

REPORT INFORMATION
  Report Type: Report from Study
  Country: US (occurrence: US)
  Receive Date: 20171027
  Receipt Date: 20180111
  Transmission Date: 20180508
  Serious: Yes (Other)
  Sender: FDA-Public Use
  Company Number: US-AMGEN-USASL2017136440

PATIENT
  Age: 85 Year
  Sex: Female

DRUGS (2)
  1. REPATHA [Suspect]
     Active Substance: EVOLOCUMAB
     Indication: BLOOD CHOLESTEROL INCREASED
  2. REPATHA [Suspect]
     Active Substance: EVOLOCUMAB
     Indication: LOW DENSITY LIPOPROTEIN INCREASED
     Dosage: 140 MG, Q2WK
     Route: 065
     Dates: start: 2016

REACTIONS (7)
  - Dry skin [Not Recovered/Not Resolved]
  - Rash macular [Unknown]
  - Cardiac disorder [Unknown]
  - Hyperaesthesia [Unknown]
  - Back pain [Unknown]
  - Skin ulcer [Unknown]
  - Exfoliative rash [Unknown]

NARRATIVE: CASE EVENT DATE: 2016
